FAERS Safety Report 6232232-4 (Version None)
Quarter: 2009Q2

REPORT INFORMATION
  Report Type: 
  Country: None (occurrence: None)
  Receive Date: 20090616
  Receipt Date: 20090616
  Transmission Date: 20091009
  Serious: Yes (Other)
  Sender: FDA-Public Use
  Company Number: None

PATIENT
  Age: 55 Year
  Sex: Male
  Weight: 104.5 kg

DRUGS (6)
  1. CETACAINE TOPICAL ANES SPRAY [Suspect]
     Indication: ECHOCARDIOGRAM
     Dosage: ?DURATION OR # OF SPRAYS NOT DOCUMENTED  1X  TOPICAL TO OROPHARYNX
     Route: 061
     Dates: start: 20090601
  2. MIDAZOLAM HCL [Suspect]
     Indication: ECHOCARDIOGRAM
     Dosage: 2MG 1X IV
     Route: 042
     Dates: start: 20090601
  3. LISINAPRIL [Concomitant]
  4. NEXIUM [Concomitant]
  5. COUMADIN [Concomitant]
  6. ASPIRIN [Concomitant]

REACTIONS (4)
  - BLOOD METHAEMOGLOBIN PRESENT [None]
  - OXYGEN SATURATION DECREASED [None]
  - PO2 INCREASED [None]
  - SKIN DISCOLOURATION [None]
